FAERS Safety Report 11433451 (Version 1)
Quarter: 2015Q3

REPORT INFORMATION
  Report Type: Spontaneous
  Country: FR (occurrence: None)
  Receive Date: 20150827
  Receipt Date: 20150827
  Transmission Date: 20151125
  Serious: Yes (Other)
  Sender: FDA-Public Use
  Company Number: COR_00364_2015

PATIENT
  Age: 3 Year

DRUGS (5)
  1. CARBOPLATIN (CARBOPLATIN) [Suspect]
     Active Substance: CARBOPLATIN
     Indication: NEPHROBLASTOMA
     Dosage: (2 COURSES)
  2. VINCRISTINE (VINCRISTINE) [Suspect]
     Active Substance: VINCRISTINE
     Indication: NEPHROBLASTOMA
     Dosage: (DF)
  3. DOXORUBICIN (DOXORUBICIN) [Suspect]
     Active Substance: DOXORUBICIN
     Indication: NEPHROBLASTOMA
     Dosage: (DF)
  4. ACTINOMYCINES (ACTINOMYCIN) [Suspect]
     Active Substance: UNSPECIFIED INGREDIENT
     Indication: NEPHROBLASTOMA
     Dosage: (DF)
  5. ETOPOSIDE (ETOPOSIDE) [Suspect]
     Active Substance: ETOPOSIDE
     Indication: NEPHROBLASTOMA
     Dosage: (2 COURSES)

REACTIONS (1)
  - Aplasia [None]
